FAERS Safety Report 26130206 (Version 1)
Quarter: 2025Q4

REPORT INFORMATION
  Report Type: Spontaneous
  Country: US (occurrence: US)
  Receive Date: 20251208
  Receipt Date: 20251208
  Transmission Date: 20260117
  Serious: No
  Sender: PADAGIS
  Company Number: US-PADAGIS-2025PAD01517

PATIENT

DRUGS (4)
  1. NYSTOP [Suspect]
     Active Substance: NYSTATIN
     Indication: Balanoposthitis
     Dosage: UNK
     Route: 061
  2. NYSTOP [Suspect]
     Active Substance: NYSTATIN
     Indication: Balanoposthitis
  3. CEPHALEXIN MONOHYDRATE [Suspect]
     Active Substance: CEPHALEXIN MONOHYDRATE
     Indication: Balanoposthitis
     Dosage: UNK
     Route: 065
  4. CEPHALEXIN MONOHYDRATE [Suspect]
     Active Substance: CEPHALEXIN MONOHYDRATE
     Indication: Balanoposthitis

REACTIONS (2)
  - Disease recurrence [Unknown]
  - Drug ineffective for unapproved indication [Unknown]
